FAERS Safety Report 15355686 (Version 1)
Quarter: 2018Q3

REPORT INFORMATION
  Report Type: Other
  Country: PL (occurrence: PL)
  Receive Date: 20180906
  Receipt Date: 20180906
  Transmission Date: 20181010
  Serious: Yes (Other)
  Sender: FDA-Public Use
  Company Number: PL-APOTEX-2018AP020027

PATIENT
  Age: 12 Year
  Sex: Male

DRUGS (4)
  1. RITUXIMAB. [Interacting]
     Active Substance: RITUXIMAB
     Indication: NEPHROTIC SYNDROME
     Dosage: TWO DOSES OF 375 MG/M2 WITH 1 WEEK BETWEEN DOSES
     Route: 065
     Dates: start: 201408
  2. PREDNISONE. [Concomitant]
     Active Substance: PREDNISONE
     Indication: NEPHROTIC SYNDROME
     Dosage: 5 MG, QD
     Route: 065
  3. MYCOPHENOLATE [Suspect]
     Active Substance: MYCOPHENOLIC ACID
     Indication: NEPHROTIC SYNDROME
     Dosage: MMF 2 X 1000 MG (650 MG/M2)
     Route: 065
     Dates: start: 2013
  4. METHYLPREDNISOLONE. [Concomitant]
     Active Substance: METHYLPREDNISOLONE
     Indication: NEPHROTIC SYNDROME
     Route: 065

REACTIONS (2)
  - Neutrophil Pelger-Huet anomaly present [Recovered/Resolved]
  - Drug interaction [Recovered/Resolved]
